FAERS Safety Report 17505718 (Version 1)
Quarter: 2020Q1

REPORT INFORMATION
  Report Type: Spontaneous
  Country: US (occurrence: US)
  Receive Date: 20200225
  Receipt Date: 20200225
  Transmission Date: 20200409
  Serious: No
  Sender: FDA-Public Use
  Company Number: None

PATIENT
  Age: 70 Year
  Sex: Male

DRUGS (1)
  1. ALLOPURINOL (ALLOPURINOL 300MG TAB) [Suspect]
     Active Substance: ALLOPURINOL
     Indication: WALDENSTROM^S MACROGLOBULINAEMIA
     Dates: start: 20190826, end: 20190902

REACTIONS (2)
  - Drug eruption [None]
  - Rash morbilliform [None]

NARRATIVE: CASE EVENT DATE: 20190904
